FAERS Safety Report 15543170 (Version 2)
Quarter: 2018Q4

REPORT INFORMATION
  Report Type: Spontaneous
  Country: BR (occurrence: BR)
  Receive Date: 20181023
  Receipt Date: 20181114
  Transmission Date: 20190205
  Serious: Yes (Other)
  Sender: FDA-Public Use
  Company Number: BR-PFIZER INC-2018427967

PATIENT
  Age: 82 Year
  Sex: Female

DRUGS (4)
  1. OPTIVE [Concomitant]
     Active Substance: CARBOXYMETHYLCELLULOSE SODIUM\GLYCERIN
     Indication: EYE LUBRICATION THERAPY
     Dosage: UNK
  2. DIACEREINE [Concomitant]
     Indication: OSTEOARTHRITIS
     Dosage: UNK
  3. BLEPHAGEL [CARBOMER;MACROGOL;POLOXALCOL;SODIUM BORATE] [Concomitant]
     Indication: EYE DISORDER
     Dosage: UNK
  4. XALATAN [Suspect]
     Active Substance: LATANOPROST
     Indication: GLAUCOMA
     Dosage: 2 GTT, UNK (1 DROP IN EACH SIGHT)
     Dates: end: 201808

REACTIONS (2)
  - Glaucoma [Unknown]
  - Thyroid disorder [Recovered/Resolved]

NARRATIVE: CASE EVENT DATE: 2014
